FAERS Safety Report 5280242-6 (Version None)
Quarter: 2007Q1

REPORT INFORMATION
  Report Type: 
  Country: None (occurrence: None)
  Receive Date: 20070329
  Receipt Date: 20070326
  Transmission Date: 20070707
  Serious: Yes (Life-Threatening, Hospitalization)
  Sender: FDA-Public Use
  Company Number: HQWYE776127MAR07

PATIENT
  Sex: Male
  Weight: 98 kg

DRUGS (11)
  1. SIROLIMUS [Suspect]
     Indication: PROPHYLAXIS AGAINST TRANSPLANT REJECTION
     Route: 048
     Dates: start: 20040429
  2. LAMIVUDINE [Concomitant]
     Indication: ANTIVIRAL PROPHYLAXIS
     Route: 048
     Dates: start: 20040101
  3. SULFAMETHOXAZOLE + TRIMETHOPRIM [Concomitant]
     Indication: INFECTION PROPHYLAXIS
     Dosage: 160MG/800MG EVERY 48 HOURS
     Route: 048
     Dates: start: 20040430
  4. GABAPENTIN [Concomitant]
     Indication: PAIN PROPHYLAXIS
     Route: 048
     Dates: start: 20020901
  5. AMLODIPINE [Concomitant]
     Indication: HYPERTENSION
     Route: 048
     Dates: start: 20061022
  6. IMMUNOGLOBULIN ANTIHEPATITIS B [Concomitant]
     Indication: ANTIVIRAL PROPHYLAXIS
     Dosage: 1 MONTHLY
     Dates: start: 20051121
  7. DOXAZOSIN MESYLATE [Concomitant]
     Indication: HYPERTENSION
     Route: 048
     Dates: start: 20010301
  8. CANDESARTAN CILEXETIL [Concomitant]
     Indication: HYPERTENSION
     Dosage: 160 DAILY
     Route: 048
     Dates: start: 20030704
  9. HYDROCHLOROTHIAZIDE [Concomitant]
     Indication: HYPERTENSION
     Dosage: 12.5 DAILY
     Route: 048
     Dates: start: 20030704
  10. INSULIN [Concomitant]
     Indication: DIABETES MELLITUS
     Dosage: 0-15-0
     Dates: start: 19930101
  11. OMEPRAZOLE [Concomitant]
     Indication: PROPHYLAXIS
     Dosage: UNSPECIFIED
     Route: 048
     Dates: start: 20020901

REACTIONS (2)
  - CONDITION AGGRAVATED [None]
  - NEPHROTIC SYNDROME [None]
